FAERS Safety Report 22382575 (Version 1)
Quarter: 2023Q2

REPORT INFORMATION
  Report Type: Spontaneous
  Country: US (occurrence: US)
  Receive Date: 20230530
  Receipt Date: 20230530
  Transmission Date: 20230721
  Serious: Yes (Other)
  Sender: FDA-Public Use
  Company Number: US-JNJFOC-20230551321

PATIENT
  Age: 27 Year

DRUGS (2)
  1. BENADRYL [Suspect]
     Active Substance: DIPHENHYDRAMINE HYDROCHLORIDE
     Indication: Sleep disorder therapy
     Dosage: INCREASINGLY LARGER AMOUNTS. STARTED WITH 4 TABLETS  (100MG) 1X A DAY, WEEK 3 IT WAS 20-30 TABLETS A
     Route: 065
     Dates: start: 20190601
  2. BENADRYL [Suspect]
     Active Substance: DIPHENHYDRAMINE HYDROCHLORIDE
     Indication: Substance use

REACTIONS (2)
  - Hallucinations, mixed [Recovered/Resolved]
  - Intentional overdose [Unknown]

NARRATIVE: CASE EVENT DATE: 20190621
